FAERS Safety Report 4577996-0 (Version None)
Quarter: 2005Q1

REPORT INFORMATION
  Report Type: 
  Country: None (occurrence: None)
  Receive Date: 20050203
  Receipt Date: 20050203
  Transmission Date: 20050727
  Serious: No
  Sender: FDA-Public Use
  Company Number: None

PATIENT
  Age: 59 Year
  Sex: Female
  Weight: 74.8435 kg

DRUGS (1)
  1. ZOCOR [Suspect]
     Dosage: 1 X DAY
     Dates: start: 20041001, end: 20041201

REACTIONS (5)
  - ARTHRALGIA [None]
  - DIFFICULTY IN WALKING [None]
  - DYSPNOEA [None]
  - MUSCLE SPASMS [None]
  - PAIN IN EXTREMITY [None]
